FAERS Safety Report 20597892 (Version 1)
Quarter: 2022Q1

REPORT INFORMATION
  Report Type: Spontaneous
  Country: TR (occurrence: TR)
  Receive Date: 20220315
  Receipt Date: 20220315
  Transmission Date: 20220423
  Serious: Yes (Other)
  Sender: FDA-Public Use
  Company Number: TR-LUNDBECK-DKLU3043153

PATIENT

DRUGS (1)
  1. VORTIOXETINE [Suspect]
     Active Substance: VORTIOXETINE
     Indication: Product used for unknown indication
     Dosage: 5 MILLIGRAM, QD
     Route: 065

REACTIONS (8)
  - Loss of consciousness [Recovered/Resolved]
  - Eating disorder [Unknown]
  - Tremor [Unknown]
  - Somnolence [Recovered/Resolved]
  - Insomnia [Recovered/Resolved]
  - Suspiciousness [Recovered/Resolved]
  - Disturbance in attention [Recovered/Resolved]
  - Nausea [Unknown]
